FAERS Safety Report 15798114 (Version 1)
Quarter: 2019Q1

REPORT INFORMATION
  Report Type: Spontaneous
  Country: CN (occurrence: CN)
  Receive Date: 20190108
  Receipt Date: 20190108
  Transmission Date: 20190417
  Serious: Yes (Other)
  Sender: FDA-Public Use
  Company Number: CN-ASTRAZENECA-2019SE01943

PATIENT
  Sex: Male
  Weight: 70 kg

DRUGS (8)
  1. L-GLUTAMINE AND SODIUM GUALENATE [Concomitant]
     Indication: ENCEPHALITIS JAPANESE B
     Route: 048
     Dates: start: 20180930, end: 20181021
  2. HEPARIN CALCIUM [Concomitant]
     Active Substance: HEPARIN CALCIUM
     Indication: ENCEPHALITIS JAPANESE B
     Route: 058
     Dates: start: 20181013, end: 20181024
  3. HEPARIN CALCIUM [Concomitant]
     Active Substance: HEPARIN CALCIUM
     Indication: LUNG INFECTION
     Route: 058
     Dates: start: 20181013, end: 20181024
  4. L-GLUTAMINE AND SODIUM GUALENATE [Concomitant]
     Indication: LUNG INFECTION
     Route: 048
     Dates: start: 20180930, end: 20181021
  5. AMBROXOL HYDROCHLORIDE [Concomitant]
     Active Substance: AMBROXOL HYDROCHLORIDE
     Indication: LUNG INFECTION
     Route: 048
     Dates: start: 20180930, end: 20181021
  6. ESOMEPRAZOLE MAGNESIUM. [Suspect]
     Active Substance: ESOMEPRAZOLE MAGNESIUM
     Indication: ENCEPHALITIS JAPANESE B
     Route: 048
     Dates: start: 20181014, end: 20181019
  7. ESOMEPRAZOLE MAGNESIUM. [Suspect]
     Active Substance: ESOMEPRAZOLE MAGNESIUM
     Indication: LUNG INFECTION
     Route: 048
     Dates: start: 20181014, end: 20181019
  8. AMBROXOL HYDROCHLORIDE [Concomitant]
     Active Substance: AMBROXOL HYDROCHLORIDE
     Indication: ENCEPHALITIS JAPANESE B
     Route: 048
     Dates: start: 20180930, end: 20181021

REACTIONS (2)
  - Tachyarrhythmia [Recovered/Resolved]
  - Atrial fibrillation [Recovered/Resolved]
